FAERS Safety Report 5535361-3 (Version None)
Quarter: 2007Q4

REPORT INFORMATION
  Report Type: 
  Country: None (occurrence: None)
  Receive Date: 20071206
  Receipt Date: 20071127
  Transmission Date: 20080405
  Serious: Yes (Hospitalization)
  Sender: FDA-Public Use
  Company Number: ES-PFIZER INC-2007099340

PATIENT
  Age: 82 Year
  Sex: Female

DRUGS (6)
  1. LYRICA [Suspect]
     Indication: TEMPORAL ARTERITIS
     Route: 048
     Dates: start: 20070716, end: 20070727
  2. RISEDRONATE SODIUM [Concomitant]
     Route: 048
  3. IBUPROFEN [Concomitant]
     Route: 048
  4. ACETYLSALICYLIC ACID SRT [Concomitant]
     Route: 048
  5. PREDNISONE TAB [Concomitant]
     Route: 048
  6. IDEOS [Concomitant]
     Route: 048

REACTIONS (1)
  - HYPOVENTILATION [None]
